FAERS Safety Report 5756034-8 (Version None)
Quarter: 2008Q2

REPORT INFORMATION
  Report Type: 
  Country: None (occurrence: None)
  Receive Date: 20080602
  Receipt Date: 20080527
  Transmission Date: 20081010
  Serious: Yes (Death)
  Sender: FDA-Public Use
  Company Number: PHEH2008US04505

PATIENT
  Sex: Male
  Weight: 86.621 kg

DRUGS (6)
  1. RECLAST [Suspect]
     Indication: OSTEITIS DEFORMANS
     Dosage: 5 MG ONCE PER YEAR
     Route: 042
     Dates: start: 20080501
  2. COUMADIN [Concomitant]
     Indication: ATRIAL FIBRILLATION
     Dosage: 7.5 UNK, QD
  3. METOPROLOL SUCCINATE [Concomitant]
     Dosage: 25 UNK, QD
  4. FUROSEMIDE [Concomitant]
     Indication: OEDEMA
     Dosage: 40 UNK, QD
  5. CELEBREX [Concomitant]
     Indication: ARTHRALGIA
     Dosage: 200 UNK, QD
  6. PROTONIX [Concomitant]
     Indication: GASTROOESOPHAGEAL REFLUX DISEASE
     Dosage: 40 UNK, QD

REACTIONS (5)
  - ARRHYTHMIA [None]
  - CARDIAC ARREST [None]
  - CATHETERISATION CARDIAC [None]
  - CIRCULATORY COLLAPSE [None]
  - LIFE SUPPORT [None]
